FAERS Safety Report 26092419 (Version 1)
Quarter: 2025Q4

REPORT INFORMATION
  Report Type: Spontaneous
  Country: US (occurrence: US)
  Receive Date: 20251126
  Receipt Date: 20251126
  Transmission Date: 20260117
  Serious: Yes (Other)
  Sender: NOVARTIS
  Company Number: US-002147023-NVSC2025US177616

PATIENT
  Age: 19 Year
  Sex: Male

DRUGS (7)
  1. TRAMETINIB [Suspect]
     Active Substance: TRAMETINIB
     Indication: Erdheim-Chester disease
     Dosage: UNK
     Route: 065
  2. COBIMETINIB [Suspect]
     Active Substance: COBIMETINIB
     Indication: Erdheim-Chester disease
     Dosage: UNK
     Route: 065
  3. ULIXERTINIB [Suspect]
     Active Substance: ULIXERTINIB
     Indication: Erdheim-Chester disease
     Dosage: UNK
     Route: 065
  4. PEXIDARTINIB [Suspect]
     Active Substance: PEXIDARTINIB
     Indication: Erdheim-Chester disease
     Dosage: UNK
     Route: 065
  5. CLADRIBINE [Suspect]
     Active Substance: CLADRIBINE
     Indication: Erdheim-Chester disease
     Dosage: UNK
     Route: 065
  6. MELPHALAN [Concomitant]
     Active Substance: MELPHALAN
     Indication: Histiocytic sarcoma
     Dosage: 7.5 MG TO LEFT OPHTHALMIC ARTERY
     Route: 013
  7. MELPHALAN [Concomitant]
     Active Substance: MELPHALAN
     Dosage: 7.5 MG ONE TO THE RIGHT AL SEGMENT
     Route: 013

REACTIONS (4)
  - Blindness [Unknown]
  - Myelopathy [Unknown]
  - Skin lesion [Unknown]
  - Off label use [Unknown]
